FAERS Safety Report 8509386-X (Version None)
Quarter: 2012Q3

REPORT INFORMATION
  Report Type: 
  Country: None (occurrence: None)
  Receive Date: 20120703
  Receipt Date: 20120621
  Transmission Date: 20120928
  Serious: Yes (Hospitalization)
  Sender: FDA-Public Use
  Company Number: AUR-APL-2012-02738

PATIENT
  Age: 60 Year
  Sex: Female
  Weight: 76.2 kg

DRUGS (7)
  1. PREGABALIN [Suspect]
     Dosage: 100 MG (50 MG, 2 IN 1 D), ORAL
     Route: 048
  2. LANSOPRAZOLE [Concomitant]
  3. CLARITHROMYCIN [Concomitant]
  4. LEVETIRACETAM [Suspect]
     Indication: PRODUCT USED FOR UNKNOWN INDICATION
     Dosage: 1500 MG (750 MG, 2 IN 1 D), ORAL
     Route: 048
  5. VALPROATE SODIUM [Suspect]
     Indication: EPILEPSY
     Dosage: 2 GM (1 GM, 2 IN 1 D), ORAL
     Route: 048
  6. CLOBAZAM [Concomitant]
  7. ACETAMINOPHEN W/ CODEINE [Concomitant]

REACTIONS (1)
  - PANCREATITIS [None]
